FAERS Safety Report 18581568 (Version 2)
Quarter: 2020Q4

REPORT INFORMATION
  Report Type: Spontaneous
  Country: DE (occurrence: DE)
  Receive Date: 20201204
  Receipt Date: 20201211
  Transmission Date: 20210114
  Serious: Yes (Death, Other)
  Sender: FDA-Public Use
  Company Number: DE-MALLINCKRODT-T202005677

PATIENT

DRUGS (3)
  1. UVADEX [Suspect]
     Active Substance: METHOXSALEN
     Indication: CHRONIC GRAFT VERSUS HOST DISEASE
     Dosage: UNK (EXTRACORPOREAL)
     Route: 050
  2. RUXOLITINIB [Suspect]
     Active Substance: RUXOLITINIB
     Dosage: 5 MG TWICE DAILYUNK
     Route: 065
  3. RUXOLITINIB [Suspect]
     Active Substance: RUXOLITINIB
     Indication: CHRONIC GRAFT VERSUS HOST DISEASE
     Dosage: 10 MG TWICE DAILY
     Route: 065

REACTIONS (6)
  - Infection [Fatal]
  - Cytomegalovirus infection reactivation [Unknown]
  - Treatment failure [Unknown]
  - Cytopenia [Unknown]
  - Therapy partial responder [Unknown]
  - Product use in unapproved indication [Unknown]
